FAERS Safety Report 20921111 (Version 1)
Quarter: 2022Q2

REPORT INFORMATION
  Report Type: Spontaneous
  Country: US (occurrence: US)
  Receive Date: 20220606
  Receipt Date: 20220606
  Transmission Date: 20220720
  Serious: No
  Sender: FDA-Public Use
  Company Number: US-MYLANLABS-2022M1039570

PATIENT

DRUGS (1)
  1. WIXELA INHUB [Suspect]
     Active Substance: FLUTICASONE PROPIONATE\SALMETEROL XINAFOATE
     Indication: Product used for unknown indication
     Dosage: 500/50 MICROGRAM
     Route: 055

REACTIONS (6)
  - Candida infection [Unknown]
  - Fatigue [Unknown]
  - Cough [Unknown]
  - Dry mouth [Unknown]
  - Chest pain [Unknown]
  - Product substitution issue [Unknown]
